FAERS Safety Report 5877774-6 (Version None)
Quarter: 2008Q3

REPORT INFORMATION
  Report Type: 
  Country: None (occurrence: None)
  Receive Date: 20080911
  Receipt Date: 20080903
  Transmission Date: 20090109
  Serious: Yes (Death)
  Sender: FDA-Public Use
  Company Number: GB-NOVOPROD-279079

PATIENT
  Age: 31 Year
  Sex: Female
  Weight: 55.5 kg

DRUGS (8)
  1. LEVEMIR [Suspect]
     Indication: DIABETES MELLITUS
  2. AMITRIPTYLINE HCL [Suspect]
     Dosage: 100 MG, QD
  3. BUSPIRONE HCL [Suspect]
     Dosage: 5 MG, BID
  4. DIAZEPAM [Suspect]
     Dosage: 4 MG, TID
  5. HUMALOG [Suspect]
  6. PREGABALIN [Suspect]
     Dosage: 300 MG, QD
  7. QUETIAPINE [Suspect]
     Dosage: 250 UNK, UNK
  8. VALPROATE SODIUM [Suspect]
     Dosage: 400 MG, BID

REACTIONS (3)
  - CARDIAC DEATH [None]
  - DIABETES MELLITUS INADEQUATE CONTROL [None]
  - GENERALISED ANXIETY DISORDER [None]
